FAERS Safety Report 5610621-6 (Version None)
Quarter: 2008Q1

REPORT INFORMATION
  Report Type: 
  Country: None (occurrence: None)
  Receive Date: 20080131
  Receipt Date: 20080131
  Transmission Date: 20080703
  Serious: No
  Sender: FDA-Public Use
  Company Number: None

PATIENT
  Age: 28 Year
  Sex: Male

DRUGS (4)
  1. METRONIDAZOLE HCL [Suspect]
     Dosage: TABLET
  2. LEVAQUIN [Suspect]
     Dosage: TABLET
  3. ALPRAZOLAM [Suspect]
     Dosage: TABLET
  4. METOPROLOL TARTRATE [Suspect]
     Dosage: TABLET

REACTIONS (2)
  - DRUG DISPENSING ERROR [None]
  - MEDICATION ERROR [None]
